FAERS Safety Report 16114273 (Version 1)
Quarter: 2019Q1

REPORT INFORMATION
  Report Type: Spontaneous
  Country: US (occurrence: US)
  Receive Date: 20190325
  Receipt Date: 20190325
  Transmission Date: 20190418
  Serious: No
  Sender: FDA-Public Use
  Company Number: US-ALLERGAN-1902852US

PATIENT
  Age: 75 Year
  Sex: Female

DRUGS (3)
  1. LATISSE [Suspect]
     Active Substance: BIMATOPROST
     Indication: GROWTH OF EYELASHES
     Dosage: 1 GTT, (3-4 TIMES PER WEEK)
     Route: 061
     Dates: end: 201901
  2. UNSPECIFIED INCONTINENCE MEDICATION [Concomitant]
     Indication: URINARY INCONTINENCE
     Dosage: UNK
     Route: 048
  3. PERMANENT MAKE-UP [Concomitant]
     Dosage: UNK

REACTIONS (4)
  - Product packaging quantity issue [Unknown]
  - Wrong technique in product usage process [Unknown]
  - Inappropriate schedule of product administration [Unknown]
  - Product dose omission [Unknown]

NARRATIVE: CASE EVENT DATE: 201901
